FAERS Safety Report 6522509-7 (Version None)
Quarter: 2009Q4

REPORT INFORMATION
  Report Type: 
  Country: None (occurrence: None)
  Receive Date: 20091230
  Receipt Date: 20091221
  Transmission Date: 20100525
  Serious: Yes (Hospitalization, Other)
  Sender: FDA-Public Use
  Company Number: US-AMGEN-QUU381729

PATIENT
  Sex: Female

DRUGS (2)
  1. ENBREL [Suspect]
     Indication: RHEUMATOID ARTHRITIS
     Route: 058
     Dates: start: 20000101
  2. METHOTREXATE [Concomitant]
     Route: 048

REACTIONS (5)
  - BREAST CALCIFICATIONS [None]
  - FALL [None]
  - HAEMORRHAGE [None]
  - HIP FRACTURE [None]
  - PRECANCEROUS CELLS PRESENT [None]
